FAERS Safety Report 6198792-7 (Version None)
Quarter: 2009Q2

REPORT INFORMATION
  Report Type: 
  Country: None (occurrence: None)
  Receive Date: 20090521
  Receipt Date: 20090513
  Transmission Date: 20091009
  Serious: Yes (Hospitalization, Disabling, Other)
  Sender: FDA-Public Use
  Company Number: US-MERCK-0810USA03094

PATIENT
  Age: 55 Year
  Sex: Female

DRUGS (7)
  1. FOSAMAX [Suspect]
     Indication: OSTEOPENIA
     Route: 048
     Dates: start: 20041012, end: 20070329
  2. FOSAMAX [Suspect]
     Route: 048
     Dates: end: 20070501
  3. FOSAMAX [Suspect]
     Indication: OSTEOPOROSIS
     Route: 048
     Dates: start: 20041012, end: 20070329
  4. FOSAMAX [Suspect]
     Route: 048
     Dates: end: 20070501
  5. FOSAMAX PLUS D [Suspect]
     Route: 048
  6. [THERAPY UNSPECIFIED] [Concomitant]
     Indication: HYPERTENSION
     Route: 065
     Dates: start: 19991201
  7. INTERFERON (UNSPECIFIED) [Suspect]
     Route: 065

REACTIONS (63)
  - ACNE [None]
  - ADVERSE EVENT [None]
  - ANAEMIA [None]
  - BACK INJURY [None]
  - BACK PAIN [None]
  - BLADDER DISORDER [None]
  - BONE DISORDER [None]
  - CATARACT [None]
  - CHEILITIS [None]
  - CHOLECYSTITIS CHRONIC [None]
  - CHOLELITHIASIS [None]
  - CONJUNCTIVAL HAEMORRHAGE [None]
  - CONJUNCTIVITIS [None]
  - CONTUSION [None]
  - COUGH [None]
  - DEAFNESS NEUROSENSORY [None]
  - DERMAL CYST [None]
  - DERMATITIS [None]
  - DRY SKIN [None]
  - DYSPHAGIA [None]
  - EAR INFECTION [None]
  - EUSTACHIAN TUBE DYSFUNCTION [None]
  - EYE DISORDER [None]
  - FOLLICULITIS [None]
  - FOOT DEFORMITY [None]
  - HAEMATOCHEZIA [None]
  - HEPATIC ENZYME INCREASED [None]
  - HEPATITIS C [None]
  - HERPES ZOSTER [None]
  - HYPERSENSITIVITY [None]
  - INFECTION [None]
  - INFLAMMATION [None]
  - JAW DISORDER [None]
  - JAW FRACTURE [None]
  - LENTIGO [None]
  - LIVER DISORDER [None]
  - MUSCLE INJURY [None]
  - MYALGIA [None]
  - NASAL CONGESTION [None]
  - NAUSEA [None]
  - OEDEMA PERIPHERAL [None]
  - ORAL DISORDER [None]
  - ORAL TORUS [None]
  - OSTEOARTHRITIS [None]
  - OSTEONECROSIS [None]
  - OSTEOPOROSIS [None]
  - OTITIS MEDIA [None]
  - OVARIAN DISORDER [None]
  - OVERWEIGHT [None]
  - PAIN [None]
  - PROTEINURIA [None]
  - RESORPTION BONE INCREASED [None]
  - RESPIRATORY TRACT CONGESTION [None]
  - RETINOPATHY HYPERTENSIVE [None]
  - RHINITIS ALLERGIC [None]
  - SCIATICA [None]
  - SINUS DISORDER [None]
  - SKIN HYPERPIGMENTATION [None]
  - SOFT TISSUE DISORDER [None]
  - THROMBOCYTOPENIA [None]
  - TINNITUS [None]
  - TOOTH DISORDER [None]
  - VISUAL ACUITY REDUCED [None]
